FAERS Safety Report 13922732 (Version 2)
Quarter: 2017Q3

REPORT INFORMATION
  Report Type: Report from Study
  Country: None (occurrence: US)
  Receive Date: 20170830
  Receipt Date: 20170901
  Transmission Date: 20171127
  Serious: Yes (Hospitalization, Other)
  Sender: FDA-Public Use
  Company Number: US-ABBVIE-17P-163-2081086-00

PATIENT
  Age: 78 Year
  Sex: Male

DRUGS (8)
  1. ACYCLOVIR. [Concomitant]
     Active Substance: ACYCLOVIR
     Indication: PRODUCT USED FOR UNKNOWN INDICATION
     Route: 048
     Dates: start: 201705
  2. VENCLEXTA [Suspect]
     Active Substance: VENETOCLAX
     Indication: PRODUCT USED FOR UNKNOWN INDICATION
     Route: 048
     Dates: start: 20170801, end: 20170807
  3. VENCLEXTA [Suspect]
     Active Substance: VENETOCLAX
     Route: 048
     Dates: start: 20170815, end: 20170820
  4. TAMSULOSIN [Concomitant]
     Active Substance: TAMSULOSIN
     Indication: PRODUCT USED FOR UNKNOWN INDICATION
     Route: 048
     Dates: start: 201705
  5. VENCLEXTA [Suspect]
     Active Substance: VENETOCLAX
     Route: 048
     Dates: start: 20170808, end: 20170814
  6. CIPROFLOXACIN. [Concomitant]
     Active Substance: CIPROFLOXACIN
     Indication: PRODUCT USED FOR UNKNOWN INDICATION
     Route: 048
     Dates: start: 201705
  7. CIPROFLOXACIN. [Concomitant]
     Active Substance: CIPROFLOXACIN
     Dates: start: 20170801, end: 20170820
  8. ALLOPURINOL. [Concomitant]
     Active Substance: ALLOPURINOL
     Indication: PRODUCT USED FOR UNKNOWN INDICATION
     Route: 048

REACTIONS (3)
  - Pneumonia [Not Recovered/Not Resolved]
  - Platelet count decreased [Unknown]
  - Blood count abnormal [Unknown]

NARRATIVE: CASE EVENT DATE: 20170817
